FAERS Safety Report 10190741 (Version 2)
Quarter: 2014Q2

REPORT INFORMATION
  Report Type: Report from Study
  Country: DE (occurrence: DE)
  Receive Date: 20140523
  Receipt Date: 20140523
  Transmission Date: 20141212
  Serious: Yes (Hospitalization)
  Sender: FDA-Public Use
  Company Number: DE-BIOGENIDEC-2014BI029318

PATIENT
  Age: 43 Year
  Sex: Female

DRUGS (3)
  1. TECFIDERA [Suspect]
     Indication: MULTIPLE SCLEROSIS
     Route: 048
     Dates: start: 20140310
  2. L-THYROXIN [Concomitant]
     Indication: HYPOTHYROIDISM
     Dates: start: 1996
  3. INSULIN [Concomitant]

REACTIONS (4)
  - Musculoskeletal pain [Recovered/Resolved]
  - Sleep disorder [Recovered/Resolved]
  - Restless legs syndrome [Recovered/Resolved]
  - Blood glucose increased [Recovered/Resolved]
